FAERS Safety Report 5682062-7 (Version None)
Quarter: 2008Q1

REPORT INFORMATION
  Report Type: 
  Country: None (occurrence: None)
  Receive Date: 20080327
  Receipt Date: 20070918
  Transmission Date: 20080703
  Serious: Yes (Hospitalization, Other)
  Sender: FDA-Public Use
  Company Number: US-BAYER-US-2007-012375

PATIENT
  Age: 45 Year
  Sex: Female
  Weight: 67 kg

DRUGS (3)
  1. MIRENA [Suspect]
     Indication: MENORRHAGIA
     Route: 015
     Dates: start: 20050701
  2. CELEXA [Concomitant]
     Indication: DEPRESSION
  3. ZYRTEC [Concomitant]
     Indication: MULTIPLE ALLERGIES

REACTIONS (6)
  - AMENORRHOEA [None]
  - HAEMATOCRIT DECREASED [None]
  - HYPOMENORRHOEA [None]
  - IUCD COMPLICATION [None]
  - UTERINE LEIOMYOMA [None]
  - VAGINAL HAEMORRHAGE [None]
